FAERS Safety Report 14636470 (Version 6)
Quarter: 2019Q4

REPORT INFORMATION
  Report Type: Spontaneous
  Country: US (occurrence: US)
  Receive Date: 20180314
  Receipt Date: 20191202
  Transmission Date: 20200122
  Serious: Yes (Other)
  Sender: FDA-Public Use
  Company Number: US-PFIZER INC-2017047609

PATIENT
  Age: 73 Year
  Sex: Female

DRUGS (40)
  1. SYNTHROID [Concomitant]
     Active Substance: LEVOTHYROXINE SODIUM
     Dosage: 200 MCG 4 DAYS + 175 MCG - 3 DAYS, 1X/DAY
     Route: 048
  2. ZYRTEC [Concomitant]
     Active Substance: CETIRIZINE HYDROCHLORIDE
     Dosage: 10 MG, 1X/DAY(TAKING ONCE DAILY)
  3. MELATONIN [Concomitant]
     Active Substance: MELATONIN
     Dosage: 1 MG, UNK
  4. VITAMIN D3 [Concomitant]
     Active Substance: CHOLECALCIFEROL
     Indication: SUPPLEMENTATION THERAPY
     Dosage: 1000 MG, UNK
  5. VITAMIN B12 [Concomitant]
     Active Substance: CYANOCOBALAMIN
     Indication: SUPPLEMENTATION THERAPY
     Dosage: UNK, (EVERY 2 WEEKS)
  6. SYNTHROID [Concomitant]
     Active Substance: LEVOTHYROXINE SODIUM
     Indication: BASEDOW^S DISEASE
     Dosage: 200 UG, 1X/DAY
     Route: 048
     Dates: start: 1988
  7. CLONAZEPAM. [Concomitant]
     Active Substance: CLONAZEPAM
     Dosage: 2 MG, 1X/DAY
  8. VITAMIN B12 [Concomitant]
     Active Substance: CYANOCOBALAMIN
     Indication: SUPPLEMENTATION THERAPY
     Dosage: 2000 UG, UNK
     Route: 048
  9. TIZANIDINE. [Concomitant]
     Active Substance: TIZANIDINE
     Indication: MIGRAINE
     Dosage: 4 MG, AS NEEDED(2TAB , AS NEEDED )
  10. MIRALAX [Concomitant]
     Active Substance: POLYETHYLENE GLYCOL 3350
     Dosage: 17 G, 1X/DAY
  11. AMERGE [Concomitant]
     Active Substance: NARATRIPTAN HYDROCHLORIDE
     Dosage: 2.5 MG, 1X/DAY(TAKING ONCE DAILY)
  12. FOLIC ACID. [Concomitant]
     Active Substance: FOLIC ACID
     Dosage: 1 MG, 2X/DAY
  13. PERTZYE [Concomitant]
     Active Substance: PANCRELIPASE AMYLASE\PANCRELIPASE LIPASE\PANCRELIPASE PROTEASE
     Indication: SUPPLEMENTATION THERAPY
     Dosage: UNK UNK, 3X/DAY(2 CAPSULE 3XDAY)
  14. MAGNESIUM OXIDE. [Concomitant]
     Active Substance: MAGNESIUM OXIDE
     Indication: SUPPLEMENTATION THERAPY
     Dosage: 400 MG, 2X/DAY
  15. PROTONIX [OMEPRAZOLE] [Concomitant]
     Active Substance: OMEPRAZOLE
     Dosage: 40 MG, 2X/DAY, ALTERNATE M/1 PER DAY
  16. XELJANZ [Suspect]
     Active Substance: TOFACITINIB CITRATE
     Indication: RHEUMATOID ARTHRITIS
     Dosage: 5 MG, 2X/DAY
     Route: 048
     Dates: start: 201610
  17. BUPROPION HYDROCHLORIDE XL [Concomitant]
     Active Substance: BUPROPION HYDROCHLORIDE
     Dosage: 300 MG, 1X/DAY(TAKING ONCE DAILY)
  18. ASTEPRO [Concomitant]
     Active Substance: AZELASTINE HYDROCHLORIDE
     Dosage: UNK UNK, 2X/DAY
  19. ACIDOPHILUS [Concomitant]
     Active Substance: LACTOBACILLUS ACIDOPHILUS
     Dosage: 125 MG, UNK
  20. COUMADIN [Concomitant]
     Active Substance: WARFARIN SODIUM
     Indication: DEEP VEIN THROMBOSIS
     Dosage: 5 MG, 1X/DAY(TAKING ONCE DAILY)
     Route: 048
     Dates: start: 1994
  21. COUMADIN [Concomitant]
     Active Substance: WARFARIN SODIUM
     Indication: ANTIPHOSPHOLIPID SYNDROME
     Dosage: 6 MG, 1X/DAY (TAKING ONCE DAILY)
  22. CELEBREX [Concomitant]
     Active Substance: CELECOXIB
     Dosage: 100 MG, 1X/DAY(TAKING ONCE DAILY)
  23. FLOVENT HFA [Concomitant]
     Active Substance: FLUTICASONE PROPIONATE
     Dosage: 110 MG, 2X/DAY
  24. VITAMIN B2 [RIBOFLAVIN] [Concomitant]
     Indication: SUPPLEMENTATION THERAPY
     Dosage: 200 MG, 2X/DAY
  25. ZINC. [Concomitant]
     Active Substance: ZINC
     Indication: SUPPLEMENTATION THERAPY
     Dosage: 30 MG, UNK
  26. COQ10 [ASCORBIC ACID;BETACAROTENE;CUPRIC OXIDE;MANGANESE SULFATE;SELEN [Concomitant]
     Indication: SUPPLEMENTATION THERAPY
     Dosage: 300 MG, UNK
  27. DULCOLAX (BISACODYL) [Concomitant]
     Active Substance: BISACODYL
     Dosage: 15 MG, 1X/DAY
  28. CLARITIN HIVES RELIEF [Concomitant]
     Dosage: 10 MG, ALTERNATE DAY
  29. IMMUNOGLOBULIN HUMAN NORMAL [Concomitant]
     Active Substance: HUMAN IMMUNOGLOBULIN G
     Dosage: 25 MG, 2X/DAY
  30. XANAX [Concomitant]
     Active Substance: ALPRAZOLAM
     Dosage: 0.50 MG, AS NEEDED
  31. VSL#3 [Concomitant]
     Active Substance: PROBIOTICS NOS
     Indication: SUPPLEMENTATION THERAPY
     Dosage: UNK
  32. SYNTHROID [Concomitant]
     Active Substance: LEVOTHYROXINE SODIUM
     Indication: AUTOIMMUNE THYROIDITIS
     Dosage: 200 UG, 1X/DAY
     Route: 048
     Dates: start: 1974
  33. IPRATROPIUM BROMIDE IVAX [Concomitant]
     Dosage: UNK UNK, (2-4 TIMES A DAY)
  34. AIMOVIG [Concomitant]
     Active Substance: ERENUMAB-AOOE
     Dosage: 140 MG, MONTHLY
     Route: 048
  35. CLIMARA [Concomitant]
     Active Substance: ESTRADIOL
     Indication: SUPPLEMENTATION THERAPY
     Dosage: 0.05 MG, WEEKLY
  36. FLONASE [Concomitant]
     Active Substance: FLUTICASONE PROPIONATE
     Dosage: UNK UNK, 2X/DAY
  37. TRAZODONE [Concomitant]
     Active Substance: TRAZODONE HYDROCHLORIDE
     Dosage: 100 MG, 1X/DAY(TAKING ONCE DAILY)
  38. MORPHINE SULPHATE [Concomitant]
     Active Substance: MORPHINE SULFATE
     Dosage: 15 MG, 3X/DAY(1 EVERY 6 HOURS) AS NEEDED
  39. ZOFRAN [Concomitant]
     Active Substance: ONDANSETRON HYDROCHLORIDE
     Dosage: 8 MG, AS NEEDED(1 TAB EVERY 8-12 HOURS, AS NEEDED)
  40. COMPAZINE [PROCHLORPERAZINE EDISYLATE] [Concomitant]
     Active Substance: PROCHLORPERAZINE EDISYLATE
     Dosage: 10 MG, AS NEEDED

REACTIONS (3)
  - Immunodeficiency common variable [Unknown]
  - Decreased appetite [Unknown]
  - Infection [Unknown]
